FAERS Safety Report 26121172 (Version 1)
Quarter: 2025Q4

REPORT INFORMATION
  Report Type: Spontaneous
  Country: GB (occurrence: GB)
  Receive Date: 20251204
  Receipt Date: 20251204
  Transmission Date: 20260118
  Serious: Yes (Other)
  Sender: Kenvue
  Company Number: None

PATIENT
  Age: 15 Year

DRUGS (1)
  1. CETIRIZINE HYDROCHLORIDE [Suspect]
     Active Substance: CETIRIZINE HYDROCHLORIDE
     Indication: Food allergy
     Dosage: 5 MILLIGRAM, ONCE A DAY (OD)
     Route: 065

REACTIONS (4)
  - Depressed mood [Recovered/Resolved]
  - Product use in unapproved indication [Unknown]
  - Vomiting [Recovered/Resolved]
  - Abdominal pain [Recovered/Resolved]
